FAERS Safety Report 6279823-2 (Version None)
Quarter: 2009Q3

REPORT INFORMATION
  Report Type: 
  Country: None (occurrence: None)
  Receive Date: 20090723
  Receipt Date: 20090709
  Transmission Date: 20100115
  Serious: Yes (Other)
  Sender: FDA-Public Use
  Company Number: PHHY2009IE28531

PATIENT
  Age: 84 Year
  Sex: Male

DRUGS (4)
  1. RASILEZ [Suspect]
  2. ACE INHIBITOR NOS [Concomitant]
  3. CARDURA [Concomitant]
  4. WARFARIN SODIUM [Concomitant]

REACTIONS (1)
  - MYOCARDIAL INFARCTION [None]
